FAERS Safety Report 10186888 (Version 1)
Quarter: 2014Q2

REPORT INFORMATION
  Report Type: Spontaneous
  Country: US (occurrence: US)
  Receive Date: 20140522
  Receipt Date: 20140522
  Transmission Date: 20141212
  Serious: No
  Sender: FDA-Public Use
  Company Number: US-009507513-1405USA008029

PATIENT
  Age: 19 Year
  Sex: Female
  Weight: 50.79 kg

DRUGS (1)
  1. NEXPLANON [Suspect]
     Indication: CONTRACEPTION
     Dosage: SINGLE ROD
     Route: 059
     Dates: start: 20140513

REACTIONS (3)
  - Device difficult to use [Unknown]
  - Device expulsion [Unknown]
  - Product quality issue [Unknown]
